FAERS Safety Report 16409540 (Version 3)
Quarter: 2019Q3

REPORT INFORMATION
  Report Type: Spontaneous
  Country: US (occurrence: US)
  Receive Date: 20190610
  Receipt Date: 20190722
  Transmission Date: 20191004
  Serious: Yes (Other)
  Sender: FDA-Public Use
  Company Number: US-PFIZER INC-2019240681

PATIENT
  Age: 65 Year
  Sex: Female

DRUGS (3)
  1. LYRICA [Suspect]
     Active Substance: PREGABALIN
     Indication: CONGENITAL NEUROPATHY
  2. LYRICA [Suspect]
     Active Substance: PREGABALIN
     Indication: PERIPHERAL SENSORY NEUROPATHY
     Dosage: 50 MG, 3X/DAY
     Route: 048
  3. LYRICA [Suspect]
     Active Substance: PREGABALIN
     Indication: POLYNEUROPATHY

REACTIONS (15)
  - Eye disorder [Unknown]
  - Seizure [Unknown]
  - Pain in extremity [Unknown]
  - Loss of consciousness [Unknown]
  - Dizziness [Unknown]
  - Tension headache [Unknown]
  - Blood pressure increased [Unknown]
  - Burning sensation [Unknown]
  - Dry eye [Unknown]
  - Musculoskeletal stiffness [Unknown]
  - Back pain [Unknown]
  - Pyrexia [Unknown]
  - Nervousness [Unknown]
  - Headache [Unknown]
  - Hypoaesthesia [Unknown]
